FAERS Safety Report 4462608-7 (Version None)
Quarter: 2004Q3

REPORT INFORMATION
  Report Type: 
  Country: None (occurrence: None)
  Receive Date: 20040928
  Receipt Date: 20040914
  Transmission Date: 20050211
  Serious: Yes (Death, Hospitalization)
  Sender: FDA-Public Use
  Company Number: 2004-07-0972

PATIENT
  Age: 36 Year
  Sex: Male
  Weight: 93 kg

DRUGS (9)
  1. TEMODAL [Suspect]
     Indication: OLIGODENDROGLIOMA
     Dosage: SEE IMAGE
     Route: 048
     Dates: start: 20031101, end: 20040401
  2. TEMODAL [Suspect]
     Indication: OLIGODENDROGLIOMA
     Dosage: SEE IMAGE
     Route: 048
     Dates: start: 20040616, end: 20040726
  3. RADIATION THERAPY NO DOSE FORM [Suspect]
     Indication: OLIGODENDROGLIOMA
     Dosage: X-RAY THERAPY
     Dates: end: 20040811
  4. CARMUSTINE [Suspect]
     Indication: OLIGODENDROGLIOMA
     Dosage: INTRAVENOUS
     Route: 042
     Dates: start: 20031101, end: 20040401
  5. CARMUSTINE [Suspect]
     Indication: OLIGODENDROGLIOMA
     Dosage: INTRAVENOUS
     Route: 042
     Dates: start: 20040616, end: 20040811
  6. SOLUPRED [Suspect]
     Indication: OEDEMA
     Dosage: 60 MG ORAL
     Route: 048
     Dates: start: 20031101, end: 20040801
  7. SOLUPRED [Suspect]
     Indication: PROPHYLAXIS
     Dosage: 60 MG ORAL
     Route: 048
     Dates: start: 20031101, end: 20040801
  8. MOPRAL (OMEPRAZOLE) [Concomitant]
  9. TRILEPTAL [Concomitant]

REACTIONS (7)
  - ACUTE RESPIRATORY DISTRESS SYNDROME [None]
  - ANAEMIA [None]
  - COUGH [None]
  - CYTOMEGALOVIRUS INFECTION [None]
  - INFECTION [None]
  - LUNG DISORDER [None]
  - NEUTROPENIA [None]
